FAERS Safety Report 20531342 (Version 2)
Quarter: 2022Q1

REPORT INFORMATION
  Report Type: Spontaneous
  Country: US (occurrence: US)
  Receive Date: 20220301
  Receipt Date: 20220317
  Transmission Date: 20220423
  Serious: Yes (Other)
  Sender: FDA-Public Use
  Company Number: US-MACLEODS PHARMACEUTICALS US LTD-MAC2022034574

PATIENT

DRUGS (8)
  1. VENLAFAXINE [Interacting]
     Active Substance: VENLAFAXINE HYDROCHLORIDE
     Indication: Product used for unknown indication
     Dosage: 150 MILLIGRAM, QD
     Route: 065
  2. QUETIAPINE [Interacting]
     Active Substance: QUETIAPINE
     Indication: Product used for unknown indication
     Dosage: 300 MILLIGRAM, QD, NIGHTLY
     Route: 065
  3. HERBALS\MITRAGYNINE [Interacting]
     Active Substance: HERBALS\MITRAGYNINE
     Indication: Drug abuse
     Dosage: UNK UNK, QD; APPROX 90 G DAILY
     Route: 065
  4. BUPRENORPHINE\NALOXONE [Concomitant]
     Active Substance: BUPRENORPHINE\NALOXONE
     Indication: Drug use disorder
     Route: 065
  5. BUPRENORPHINE\NALOXONE [Concomitant]
     Active Substance: BUPRENORPHINE\NALOXONE
     Indication: Drug abuse
     Dosage: UNK (8 MG/2 MG)
     Route: 048
  6. BUPRENORPHINE\NALOXONE [Concomitant]
     Active Substance: BUPRENORPHINE\NALOXONE
     Dosage: UNK (ADDITIONAL 4 MG/1 MG)
     Route: 065
  7. BUPRENORPHINE\NALOXONE [Concomitant]
     Active Substance: BUPRENORPHINE\NALOXONE
     Dosage: UNK UNK, QD (12 MG/3 MG),UNTIL HIS NEXT APPOINTMENT
     Route: 065
  8. BUPRENORPHINE\NALOXONE [Concomitant]
     Active Substance: BUPRENORPHINE\NALOXONE
     Dosage: UNK UNK, QD(INCREASED TO 16 MG/4 MG DAILY)
     Route: 065

REACTIONS (8)
  - Serotonin syndrome [Recovered/Resolved]
  - Electrocardiogram QT prolonged [Recovered/Resolved]
  - Drug level above therapeutic [Recovered/Resolved]
  - Electrocardiogram abnormal [Recovered/Resolved]
  - Toxicity to various agents [Unknown]
  - Drug use disorder [Recovered/Resolved]
  - Herbal interaction [Recovered/Resolved]
  - Drug interaction [Recovered/Resolved]
